FAERS Safety Report 8857797 (Version 6)
Quarter: 2013Q4

REPORT INFORMATION
  Report Type: Spontaneous
  Country: US (occurrence: US)
  Receive Date: 20121024
  Receipt Date: 20131011
  Transmission Date: 20140711
  Serious: Yes (Death, Life-Threatening, Hospitalization, Disabling, Other)
  Sender: FDA-Public Use
  Company Number: US-MERCK-1210USA011063

PATIENT
  Sex: Female
  Weight: 63.49 kg

DRUGS (4)
  1. JANUMET [Suspect]
     Indication: TYPE 2 DIABETES MELLITUS
     Dosage: 50/1000MG, BID
     Route: 048
     Dates: start: 200901, end: 20090519
  2. JANUMET [Suspect]
     Dosage: 50-500MG,BID
     Route: 048
     Dates: end: 20090519
  3. BYETTA [Suspect]
     Indication: TYPE 2 DIABETES MELLITUS
     Dosage: 5-10 MICROGRAM, BID
     Route: 048
     Dates: start: 20050517, end: 20100821
  4. JANUVIA [Suspect]
     Dosage: 100 MG, QD
     Route: 048
     Dates: start: 20080723

REACTIONS (40)
  - Pancreatic carcinoma [Fatal]
  - Metastases to liver [Fatal]
  - Hyperkalaemia [Unknown]
  - Rhabdomyolysis [Unknown]
  - Deep vein thrombosis [Unknown]
  - Gastrointestinal haemorrhage [Unknown]
  - Bacterial infection [Unknown]
  - Pulmonary embolism [Unknown]
  - Pancreatitis [Not Recovered/Not Resolved]
  - Renal failure acute [Unknown]
  - Renal failure [Unknown]
  - Fatigue [Unknown]
  - Proteinuria [Unknown]
  - Drug intolerance [Unknown]
  - Change of bowel habit [Unknown]
  - Dermatitis [Unknown]
  - Dyslipidaemia [Unknown]
  - Gout [Unknown]
  - Goitre [Unknown]
  - Pulmonary mass [Unknown]
  - Cholelithiasis [Unknown]
  - Dizziness [Unknown]
  - Pancreatic cyst [Unknown]
  - Liver function test abnormal [Unknown]
  - Drug intolerance [Unknown]
  - Palpitations [Unknown]
  - Hypoglycaemia [Unknown]
  - Bile duct obstruction [Unknown]
  - Oedema peripheral [Unknown]
  - Malnutrition [Unknown]
  - Hypertension [Unknown]
  - Lactic acidosis [Unknown]
  - Myalgia [Unknown]
  - Abdominal pain [Unknown]
  - Arthralgia [Unknown]
  - Drug hypersensitivity [Unknown]
  - Headache [Unknown]
  - Hypoglycaemia [Unknown]
  - Arthralgia [Unknown]
  - Drug hypersensitivity [Unknown]
